FAERS Safety Report 9687030 (Version 1)
Quarter: 2013Q4

REPORT INFORMATION
  Report Type: Report from Study
  Country: GB (occurrence: GB)
  Receive Date: 20131113
  Receipt Date: 20131113
  Transmission Date: 20140711
  Serious: Yes (Death, Life-Threatening, Hospitalization)
  Sender: FDA-Public Use
  Company Number: GB-CELGENEUS-167-50794-13105854

PATIENT
  Age: 62 Year
  Sex: Male

DRUGS (2)
  1. VIDAZA [Suspect]
     Indication: ACUTE MYELOID LEUKAEMIA
     Dosage: 155 MILLIGRAM
     Route: 058
     Dates: start: 20130617
  2. VIDAZA [Suspect]
     Dosage: 155 MILLIGRAM
     Route: 058
     Dates: end: 20131009

REACTIONS (2)
  - Death [Fatal]
  - Sepsis [Unknown]
